FAERS Safety Report 10056142 (Version 1)
Quarter: 2014Q2

REPORT INFORMATION
  Report Type: Spontaneous
  Country: US (occurrence: None)
  Receive Date: 20140401
  Receipt Date: 20140401
  Transmission Date: 20141212
  Serious: Yes (Hospitalization)
  Sender: FDA-Public Use
  Company Number: QSC-2014-0187

PATIENT
  Sex: Female

DRUGS (6)
  1. H.P. ACTHAR GEL [Suspect]
     Indication: DERMATOMYOSITIS
  2. RITUXAN (RITUXIMAB) [Concomitant]
  3. IMMUNOGLOBULIN (IMMUNOGLOBULINS NOS) [Concomitant]
  4. METHOTREXATE (METHOTREXATE) [Concomitant]
  5. PREDNISONE (PREDNISONE) [Concomitant]
  6. CYCLOPHOSPHAMIDE (CYCLOPHOSPHAMIDE) [Concomitant]

REACTIONS (1)
  - Sepsis [None]
